FAERS Safety Report 4877781-6 (Version None)
Quarter: 2006Q1

REPORT INFORMATION
  Report Type: 
  Country: None (occurrence: None)
  Receive Date: 20060111
  Receipt Date: 20051109
  Transmission Date: 20060701
  Serious: Yes (Hospitalization)
  Sender: FDA-Public Use
  Company Number: NZ-MERCK-0511NZL00086

PATIENT
  Age: 80 Year
  Sex: Female
  Weight: 65 kg

DRUGS (10)
  1. ASPIRIN [Concomitant]
     Route: 048
  2. CILAZAPRIL [Concomitant]
     Route: 048
  3. METOPROLOL [Concomitant]
     Route: 048
  4. CALCIUM CARBONATE [Concomitant]
     Route: 048
  5. ERGOCALCIFEROL [Concomitant]
     Route: 048
  6. ZOCOR [Suspect]
     Indication: BLOOD CHOLESTEROL INCREASED
     Route: 048
     Dates: start: 20031101, end: 20041101
  7. ZOCOR [Suspect]
     Route: 048
     Dates: start: 20041101, end: 20051101
  8. ZOCOR [Suspect]
     Route: 048
     Dates: start: 20051101, end: 20051101
  9. ZOCOR [Suspect]
     Route: 048
     Dates: start: 20051101
  10. FELODIPINE [Concomitant]
     Route: 048

REACTIONS (5)
  - ANGINA PECTORIS [None]
  - ARTHRALGIA [None]
  - ASTHENIA [None]
  - OEDEMA PERIPHERAL [None]
  - PAIN IN EXTREMITY [None]
